FAERS Safety Report 13455994 (Version 1)
Quarter: 2017Q2

REPORT INFORMATION
  Report Type: Spontaneous
  Country: SE (occurrence: SE)
  Receive Date: 20170419
  Receipt Date: 20170419
  Transmission Date: 20170830
  Serious: Yes (Other)
  Sender: FDA-Public Use
  Company Number: SE-ASTRAZENECA-2017SE38700

PATIENT
  Age: 45 Year
  Sex: Male

DRUGS (1)
  1. CANDESARTAN. [Suspect]
     Active Substance: CANDESARTAN
     Dosage: 16.0MG UNKNOWN
     Route: 048

REACTIONS (1)
  - Vasculitis [Recovered/Resolved]
